FAERS Safety Report 14482783 (Version 3)
Quarter: 2018Q2

REPORT INFORMATION
  Report Type: Spontaneous
  Country: SK (occurrence: SK)
  Receive Date: 20180203
  Receipt Date: 20180518
  Transmission Date: 20180711
  Serious: Yes (Other)
  Sender: FDA-Public Use
  Company Number: SK-AXELLIA-001337

PATIENT
  Age: 24 Year
  Sex: Male

DRUGS (4)
  1. TRIMETOPRIM/SULPHOMETOXAZOL [Concomitant]
     Indication: PYREXIA
     Dates: start: 2016
  2. VANCOMYCIN [Concomitant]
     Active Substance: VANCOMYCIN
     Indication: PYREXIA
     Dates: start: 2016
  3. AMPHOTERICIN B/AMPHOTERICIN B/LIPOSOME [Suspect]
     Active Substance: AMPHOTERICIN B
     Indication: BRONCHOPULMONARY ASPERGILLOSIS
  4. VORICONAZOLE. [Suspect]
     Active Substance: VORICONAZOLE
     Indication: BRONCHOPULMONARY ASPERGILLOSIS

REACTIONS (1)
  - Hypogonadism [Unknown]
